FAERS Safety Report 18796760 (Version 3)
Quarter: 2023Q2

REPORT INFORMATION
  Report Type: Spontaneous
  Country: US (occurrence: US)
  Receive Date: 20210128
  Receipt Date: 20230426
  Transmission Date: 20230721
  Serious: Yes (Other)
  Sender: FDA-Public Use
  Company Number: US-GILEAD-2021-0513445

PATIENT
  Age: 57 Year
  Sex: Female

DRUGS (27)
  1. TRUVADA [Suspect]
     Active Substance: EMTRICITABINE\TENOFOVIR DISOPROXIL FUMARATE
     Indication: HIV infection
     Dosage: UNK
     Route: 048
     Dates: start: 2005
  2. TRUVADA [Suspect]
     Active Substance: EMTRICITABINE\TENOFOVIR DISOPROXIL FUMARATE
     Dosage: UNK
     Route: 048
     Dates: start: 2007, end: 20150907
  3. STRIBILD [Suspect]
     Active Substance: COBICISTAT\ELVITEGRAVIR\EMTRICITABINE\TENOFOVIR DISOPROXIL FUMARATE
     Indication: HIV infection
     Dosage: UNK
     Route: 065
     Dates: start: 201604, end: 201608
  4. GENVOYA [Concomitant]
     Active Substance: COBICISTAT\ELVITEGRAVIR\EMTRICITABINE\TENOFOVIR ALAFENAMIDE FUMARATE
  5. EPZICOM [Concomitant]
     Active Substance: ABACAVIR SULFATE\LAMIVUDINE
  6. KALETRA [Concomitant]
     Active Substance: LOPINAVIR\RITONAVIR
  7. TRIUMEQ [Concomitant]
     Active Substance: ABACAVIR SULFATE\DOLUTEGRAVIR SODIUM\LAMIVUDINE
  8. TRIZIVIR [Concomitant]
     Active Substance: ABACAVIR SULFATE\LAMIVUDINE\ZIDOVUDINE
  9. LISINOPRIL [Concomitant]
     Active Substance: LISINOPRIL
  10. LYRICA [Concomitant]
     Active Substance: PREGABALIN
  11. DULOXETINE [Concomitant]
     Active Substance: DULOXETINE
  12. ATORVASTATIN [Concomitant]
     Active Substance: ATORVASTATIN
  13. ACYCLOVIR [Concomitant]
     Active Substance: ACYCLOVIR
  14. ZIAGEN [Concomitant]
     Active Substance: ABACAVIR SULFATE
  15. HYDROCHLOROTHIAZIDE [Concomitant]
     Active Substance: HYDROCHLOROTHIAZIDE
  16. DOCONEXENT\ICOSAPENT [Concomitant]
     Active Substance: DOCONEXENT\ICOSAPENT
  17. VESICARE [Concomitant]
     Active Substance: SOLIFENACIN SUCCINATE
  18. HYDROCODONE [Concomitant]
     Active Substance: HYDROCODONE
  19. POTASSIUM CHLORIDE [Concomitant]
     Active Substance: POTASSIUM CHLORIDE
  20. NIFEDIPINE [Concomitant]
     Active Substance: NIFEDIPINE
  21. ZETIA [Concomitant]
     Active Substance: EZETIMIBE
  22. PREDNISONE [Concomitant]
     Active Substance: PREDNISONE
  23. MIRABEGRON [Concomitant]
     Active Substance: MIRABEGRON
  24. ENTECAVIR [Concomitant]
     Active Substance: ENTECAVIR
     Indication: Hepatitis B
  25. DETROL [Concomitant]
     Active Substance: TOLTERODINE TARTRATE
  26. DIFLUNISAL [Concomitant]
     Active Substance: DIFLUNISAL
  27. FUROSEMIDE [Concomitant]
     Active Substance: FUROSEMIDE

REACTIONS (18)
  - Chronic kidney disease [Not Recovered/Not Resolved]
  - Osteoporosis [Not Recovered/Not Resolved]
  - Transient ischaemic attack [Unknown]
  - Cerebrovascular accident [Unknown]
  - Acute kidney injury [Not Recovered/Not Resolved]
  - Emotional distress [Not Recovered/Not Resolved]
  - Anxiety [Not Recovered/Not Resolved]
  - Anhedonia [Not Recovered/Not Resolved]
  - Foot deformity [Unknown]
  - Pain in extremity [Unknown]
  - Finger deformity [Unknown]
  - Arthralgia [Unknown]
  - Joint range of motion decreased [Unknown]
  - Pollakiuria [Unknown]
  - Urinary tract infection [Unknown]
  - Depression [Not Recovered/Not Resolved]
  - Fatigue [Unknown]
  - Pain [Not Recovered/Not Resolved]

NARRATIVE: CASE EVENT DATE: 20150901
